FAERS Safety Report 6496089-9 (Version None)
Quarter: 2009Q4

REPORT INFORMATION
  Report Type: 
  Country: None (occurrence: None)
  Receive Date: 20091214
  Receipt Date: 20090925
  Transmission Date: 20100525
  Serious: No
  Sender: FDA-Public Use
  Company Number: US-BRISTOL-MYERS SQUIBB COMPANY-14793715

PATIENT
  Age: 18 Year
  Sex: Male
  Weight: 88 kg

DRUGS (4)
  1. ABILIFY [Suspect]
     Dates: start: 20090301
  2. FOCALIN [Concomitant]
  3. STRATTERA [Concomitant]
  4. CYMBALTA [Concomitant]

REACTIONS (2)
  - ASTHENIA [None]
  - VOMITING [None]
